FAERS Safety Report 6130076-5 (Version None)
Quarter: 2009Q1

REPORT INFORMATION
  Report Type: 
  Country: None (occurrence: None)
  Receive Date: 20090324
  Receipt Date: 20090314
  Transmission Date: 20090719
  Serious: Yes (Other)
  Sender: FDA-Public Use
  Company Number: US-BRISTOL-MYERS SQUIBB COMPANY-14550297

PATIENT
  Sex: Female

DRUGS (1)
  1. ORENCIA [Suspect]
     Dates: start: 20081228

REACTIONS (1)
  - CEREBROVASCULAR ACCIDENT [None]
